FAERS Safety Report 5786200-7 (Version None)
Quarter: 2008Q2

REPORT INFORMATION
  Report Type: 
  Country: None (occurrence: None)
  Receive Date: 20080624
  Receipt Date: 20080617
  Transmission Date: 20081010
  Serious: Yes (Hospitalization)
  Sender: FDA-Public Use
  Company Number: B0526173A

PATIENT
  Age: 75 Year
  Sex: Male

DRUGS (1)
  1. RITMONORM [Suspect]
     Indication: ATRIAL FIBRILLATION
     Dosage: 300MG PER DAY
     Route: 048

REACTIONS (2)
  - CARDIOMYOPATHY [None]
  - MUSCLE DISORDER [None]
